FAERS Safety Report 15584404 (Version 2)
Quarter: 2018Q4

REPORT INFORMATION
  Report Type: Spontaneous
  Country: US (occurrence: US)
  Receive Date: 20181105
  Receipt Date: 20181106
  Transmission Date: 20190205
  Serious: No
  Sender: FDA-Public Use
  Company Number: US-SA-2018SA300598

PATIENT
  Age: 71 Year
  Sex: Male

DRUGS (2)
  1. PRALUENT [Suspect]
     Active Substance: ALIROCUMAB
     Indication: BLOOD CHOLESTEROL
     Dosage: 75 MG, QOW
     Route: 058
     Dates: start: 201805
  2. PRALUENT [Suspect]
     Active Substance: ALIROCUMAB
     Indication: BLOOD CHOLESTEROL INCREASED

REACTIONS (8)
  - Influenza like illness [Unknown]
  - Arthralgia [Unknown]
  - Rhinorrhoea [Unknown]
  - Asthenia [Recovered/Resolved]
  - Erythema [Unknown]
  - Pain [Recovered/Resolved]
  - Headache [Recovered/Resolved]
  - Ocular hyperaemia [Unknown]

NARRATIVE: CASE EVENT DATE: 20181027
